FAERS Safety Report 7365626 (Version 2)
Quarter: 2020Q3

REPORT INFORMATION
  Report Type: Report from Study
  Country: CA (occurrence: CA)
  Receive Date: 20100426
  Receipt Date: 20100618
  Transmission Date: 20201104
  Serious: Yes (Life-Threatening, Hospitalization)
  Sender: FDA-Public Use
  Company Number: CA-JNJFOC-20090702232

PATIENT
  Age: 58 Year
  Sex: Female
  Weight: 109 kg

DRUGS (23)
  1. CNTO 1275 [Suspect]
     Active Substance: USTEKINUMAB
     Route: 058
  2. CNTO 1275 [Suspect]
     Active Substance: USTEKINUMAB
     Route: 058
  3. CNTO 1275 [Suspect]
     Active Substance: USTEKINUMAB
     Route: 058
  4. NORVASC [Concomitant]
     Active Substance: AMLODIPINE BESYLATE
     Route: 048
  5. CNTO 1275 [Suspect]
     Active Substance: USTEKINUMAB
     Route: 058
  6. CNTO 1275 [Suspect]
     Active Substance: USTEKINUMAB
     Route: 058
  7. CNTO 1275 [Suspect]
     Active Substance: USTEKINUMAB
     Route: 058
  8. ACTOS [Concomitant]
     Active Substance: PIOGLITAZONE HYDROCHLORIDE
     Route: 048
  9. CNTO 1275 [Suspect]
     Active Substance: USTEKINUMAB
     Route: 058
  10. CNTO 1275 [Suspect]
     Active Substance: USTEKINUMAB
     Route: 058
  11. CNTO 1275 [Suspect]
     Active Substance: USTEKINUMAB
     Route: 058
  12. LIPITOR [Concomitant]
     Active Substance: ATORVASTATIN CALCIUM
     Route: 048
  13. CNTO 1275 [Suspect]
     Active Substance: USTEKINUMAB
     Route: 058
  14. CNTO 1275 [Suspect]
     Active Substance: USTEKINUMAB
     Route: 058
  15. ADVIL [Concomitant]
     Active Substance: IBUPROFEN
     Route: 048
  16. TYLENOL [Concomitant]
     Active Substance: ACETAMINOPHEN
     Route: 048
  17. CNTO 1275 [Suspect]
     Active Substance: USTEKINUMAB
     Route: 058
  18. CNTO 1275 [Suspect]
     Active Substance: USTEKINUMAB
     Route: 058
  19. CNTO 1275 [Suspect]
     Active Substance: USTEKINUMAB
     Route: 058
  20. CNTO 1275 [Suspect]
     Active Substance: USTEKINUMAB
     Indication: PSORIASIS
     Route: 058
  21. CNTO 1275 [Suspect]
     Active Substance: USTEKINUMAB
     Route: 058
  22. CNTO 1275 [Suspect]
     Active Substance: USTEKINUMAB
     Route: 058
  23. CNTO 1275 [Suspect]
     Active Substance: USTEKINUMAB
     Route: 058

REACTIONS (3)
  - Pneumonia streptococcal [Recovered/Resolved]
  - H1N1 influenza [Recovered/Resolved]
  - Acute respiratory distress syndrome [Recovered/Resolved]

NARRATIVE: CASE EVENT DATE: 20090706
